FAERS Safety Report 4555138-5 (Version None)
Quarter: 2004Q4

REPORT INFORMATION
  Report Type: 
  Country: None (occurrence: None)
  Receive Date: 20041217
  Receipt Date: 20040827
  Transmission Date: 20050328
  Serious: No
  Sender: FDA-Public Use
  Company Number: 2004-BP-05631BP

PATIENT
  Age: 52 Year
  Sex: Female

DRUGS (12)
  1. SPIRIVA [Suspect]
     Indication: ASTHMA
     Dosage: 18 MCG (18 MCG OD), IH
     Route: 055
     Dates: start: 20040712, end: 20040713
  2. SPIRIVA [Suspect]
     Indication: CHRONIC OBSTRUCTIVE AIRWAYS DISEASE
     Dosage: 18 MCG (18 MCG OD), IH
     Route: 055
     Dates: start: 20040712, end: 20040713
  3. PREVACID [Concomitant]
  4. SEREVENT [Concomitant]
  5. XANAX [Concomitant]
  6. FLOVENT [Concomitant]
  7. ATROVENT [Concomitant]
  8. ALBUTEROL [Concomitant]
  9. PREMARIN CREAM [Concomitant]
  10. MAG-OX (MAGNESIUM OXIDE) [Concomitant]
  11. NIZORAL SHAMPO [Concomitant]
  12. NYSTATIN [Concomitant]

REACTIONS (8)
  - DRY EYE [None]
  - EYE IRRITATION [None]
  - EYE PAIN [None]
  - EYE SWELLING [None]
  - HALO VISION [None]
  - HEADACHE [None]
  - NAUSEA [None]
  - VISION BLURRED [None]
